FAERS Safety Report 5165147-3 (Version None)
Quarter: 2006Q4

REPORT INFORMATION
  Report Type: 
  Country: None (occurrence: None)
  Receive Date: 20061124
  Receipt Date: 20061113
  Transmission Date: 20070319
  Serious: Yes (Hospitalization)
  Sender: FDA-Public Use
  Company Number: 20060239

PATIENT
  Age: 42 Year
  Sex: Female

DRUGS (1)
  1. VENOFER [Suspect]
     Dosage: 400 MG IV INTRAVENOUS
     Route: 042
     Dates: start: 20060920, end: 20060920

REACTIONS (4)
  - FACIAL PARESIS [None]
  - HEMIPARESIS [None]
  - HEMIPLEGIA [None]
  - PARAESTHESIA [None]
